FAERS Safety Report 5213086-1 (Version None)
Quarter: 2007Q1

REPORT INFORMATION
  Report Type: 
  Country: None (occurrence: None)
  Receive Date: 20070119
  Receipt Date: 20070109
  Transmission Date: 20070707
  Serious: Yes (Hospitalization)
  Sender: FDA-Public Use
  Company Number: JP-ROCHE-477522

PATIENT
  Age: 71 Year
  Sex: Male
  Weight: 65 kg

DRUGS (7)
  1. CAPECITABINE [Suspect]
     Indication: GASTRIC CANCER
     Dosage: GIVEN FOR TWO WEEKS FOLLOWED BY ONE WEEK REST.
     Route: 048
     Dates: start: 20061208
  2. TRASTUZUMAB [Suspect]
     Indication: GASTRIC CANCER
     Route: 042
     Dates: start: 20061208
  3. CISPLATIN [Suspect]
     Indication: GASTRIC CANCER
     Route: 042
     Dates: start: 20061208
  4. FERROUS CITRATE [Concomitant]
     Dates: start: 20061115, end: 20070109
  5. ZOLPIDEM TARTRATE [Concomitant]
     Dates: start: 20061201, end: 20070109
  6. 1 CONCOMITANT DRUG [Concomitant]
     Indication: HAEMORRHOIDS
     Dates: start: 20061213, end: 20070109
  7. DIFLUCORTOLONE VALERATE [Concomitant]
     Dosage: DRUG NAME WAS REPORTED AS DIFLUCORTOLONE VALERATE / LIDOCAINE.
     Dates: start: 20061224, end: 20070109

REACTIONS (1)
  - GOUT [None]
